FAERS Safety Report 4809666-5 (Version None)
Quarter: 2005Q4

REPORT INFORMATION
  Report Type: 
  Country: None (occurrence: None)
  Receive Date: 20051021
  Receipt Date: 20021104
  Transmission Date: 20060501
  Serious: No
  Sender: FDA-Public Use
  Company Number: USA021123415

PATIENT
  Age: 53 Year
  Sex: Male

DRUGS (5)
  1. ZYPREXA [Suspect]
     Indication: SCHIZOPHRENIA
     Dosage: 40 MG/2 DAY
     Dates: start: 19990101
  2. METAMUCIL-2 [Concomitant]
  3. TRAZODONE HCL [Concomitant]
  4. COLACE (DOCUSATE SODIUM) [Concomitant]
  5. INDERAL [Concomitant]

REACTIONS (1)
  - LEUKOCYTOSIS [None]
